FAERS Safety Report 23480737 (Version 1)
Quarter: 2024Q1

REPORT INFORMATION
  Report Type: Spontaneous
  Country: CN (occurrence: CN)
  Receive Date: 20240205
  Receipt Date: 20240205
  Transmission Date: 20240410
  Serious: Yes (Other)
  Sender: FDA-Public Use
  Company Number: CN-BAUSCHBL-2024BNL001334

PATIENT
  Age: 72 Year
  Sex: Female

DRUGS (1)
  1. CARTEOLOL HYDROCHLORIDE [Suspect]
     Active Substance: CARTEOLOL HYDROCHLORIDE
     Indication: Glaucoma
     Dosage: 1 GTT, BID
     Route: 047
     Dates: start: 20240120, end: 20240120

REACTIONS (1)
  - Xerophthalmia [Recovered/Resolved]

NARRATIVE: CASE EVENT DATE: 20240120
